FAERS Safety Report 20632045 (Version 7)
Quarter: 2022Q3

REPORT INFORMATION
  Report Type: Spontaneous
  Country: CA (occurrence: CA)
  Receive Date: 20220324
  Receipt Date: 20220701
  Transmission Date: 20221027
  Serious: Yes (Hospitalization, Other)
  Sender: FDA-Public Use
  Company Number: CA-CELLTRION INC.-2022CA003323

PATIENT

DRUGS (10)
  1. INFLECTRA [Suspect]
     Active Substance: INFLIXIMAB-DYYB
     Indication: Colitis ulcerative
     Dosage: 10 MG/KG AT WEEKS 0, 2, 6 THAN Q 8 WKS. HOSPITAL START
     Route: 042
     Dates: start: 20220203, end: 20220310
  2. INFLECTRA [Suspect]
     Active Substance: INFLIXIMAB-DYYB
     Dosage: 900 MG (10 MG/KG AT WEEKS 0, 2, 6 THAN Q 8 WKS)
     Route: 042
     Dates: start: 20220203
  3. INFLECTRA [Suspect]
     Active Substance: INFLIXIMAB-DYYB
     Dosage: 10 MG/KG AT WEEKS 0, 2, 6 THAN Q 8 WKS. HOSPITAL START
     Route: 042
     Dates: start: 20220219
  4. INFLECTRA [Suspect]
     Active Substance: INFLIXIMAB-DYYB
     Dosage: 10 MG/KG AT WEEKS 0, 2, 6 THAN Q 8 WKS. HOSPITAL START
     Route: 042
     Dates: start: 20220321
  5. XELJANZ [Concomitant]
     Active Substance: TOFACITINIB CITRATE
     Indication: Colitis ulcerative
     Dosage: 1 DF, UNK DOSE
     Route: 065
     Dates: start: 20220318
  6. XELJANZ [Concomitant]
     Active Substance: TOFACITINIB CITRATE
     Dosage: 5 MG, 2X/DAY
     Route: 048
     Dates: start: 20220318
  7. PREDNISONE [Concomitant]
     Active Substance: PREDNISONE
     Indication: Colitis ulcerative
     Dosage: 40 MG (40 MG TO START AND TAPERING DOWN BY 5 MG/WEEK)
  8. PREDNISONE [Concomitant]
     Active Substance: PREDNISONE
     Dosage: 20 MG, DAILY
  9. PREDNISONE [Concomitant]
     Active Substance: PREDNISONE
     Dosage: 15 MG
  10. PREDNISONE [Concomitant]
     Active Substance: PREDNISONE
     Dosage: 40 MG, DAILY

REACTIONS (8)
  - Condition aggravated [Unknown]
  - Malaise [Unknown]
  - Cytomegalovirus colitis [Unknown]
  - Drug ineffective [Unknown]
  - Colitis [Unknown]
  - Sleep disorder [Unknown]
  - Off label use [Unknown]
  - Off label use [Unknown]

NARRATIVE: CASE EVENT DATE: 20220101
